FAERS Safety Report 13453831 (Version 1)
Quarter: 2017Q2

REPORT INFORMATION
  Report Type: Spontaneous
  Country: US (occurrence: US)
  Receive Date: 20170418
  Receipt Date: 20170418
  Transmission Date: 20170830
  Serious: No
  Sender: FDA-Public Use
  Company Number: US-ALLERGAN-1651219US

PATIENT
  Sex: Female
  Weight: 97.51 kg

DRUGS (1)
  1. LATISSE [Suspect]
     Active Substance: BIMATOPROST
     Indication: PRODUCT USED FOR UNKNOWN INDICATION
     Dosage: 2 GTT, QHS
     Route: 061
     Dates: start: 201603, end: 201603

REACTIONS (7)
  - Dry eye [Recovered/Resolved]
  - Eye pain [Recovered/Resolved]
  - Blepharospasm [Recovering/Resolving]
  - Ocular discomfort [Recovered/Resolved]
  - Eye irritation [Recovered/Resolved]
  - Blepharospasm [Unknown]
  - Skin tightness [Recovered/Resolved]
